FAERS Safety Report 4766985-9 (Version None)
Quarter: 2005Q3

REPORT INFORMATION
  Report Type: 
  Country: None (occurrence: None)
  Receive Date: 20050909
  Receipt Date: 20050909
  Transmission Date: 20060218
  Serious: Yes (Other)
  Sender: FDA-Public Use
  Company Number: None

PATIENT
  Age: 70 Year
  Sex: Male
  Weight: 81.6475 kg

DRUGS (1)
  1. CARDIZEM [Suspect]
     Indication: MITRAL VALVE INCOMPETENCE
     Dosage: 120MG ONE DAILY PO
     Route: 048

REACTIONS (3)
  - CARDIAC DISORDER [None]
  - DIARRHOEA [None]
  - MUSCLE SPASMS [None]
